FAERS Safety Report 19162510 (Version 1)
Quarter: 2021Q2

REPORT INFORMATION
  Report Type: Spontaneous
  Country: DE (occurrence: DE)
  Receive Date: 20210421
  Receipt Date: 20210421
  Transmission Date: 20210717
  Serious: Yes (Death, Hospitalization)
  Sender: FDA-Public Use
  Company Number: DE-TEVA-2021-DE-1901950

PATIENT
  Age: 72 Year
  Sex: Female

DRUGS (12)
  1. TORASEMID [Interacting]
     Active Substance: TORSEMIDE
     Dosage: 10 MILLIGRAM DAILY; 1?0?0?0
  2. COTRIMOXAZOL AL [Suspect]
     Active Substance: SULFAMETHOXAZOLE\TRIMETHOPRIM
     Dosage: 2 DOSAGE FORMS DAILY; 800 | 160 MG, 1?0?1?0
  3. PANTOPRAZOL [Concomitant]
     Active Substance: PANTOPRAZOLE SODIUM
     Dosage: 20 MILLIGRAM DAILY; 1?0?0?0
  4. METOPROLOL. [Suspect]
     Active Substance: METOPROLOL
     Dosage: 47.5 MG, 2?0?1?0
  5. ATORVASTATIN [Concomitant]
     Active Substance: ATORVASTATIN
     Dosage: 40 MILLIGRAM DAILY; 0?0?1?0
  6. SPIRONOLACTON [Interacting]
     Active Substance: SPIRONOLACTONE
     Dosage: .5 DOSAGE FORMS DAILY; 50 MG, 0.5?0?0?0
  7. TILIDINE/NALOXONE [Concomitant]
     Active Substance: NALOXONE HYDROCHLORIDE\TILIDINE HYDROCHLORIDE
     Dosage: 4 | 50 MG, UP TO 2X1
  8. ASS 100 [Interacting]
     Active Substance: ASPIRIN
     Dosage: 100 MILLIGRAM DAILY; 0?1?0?0
  9. EFEROX 50 [Concomitant]
     Dosage: 50 MICROGRAM DAILY; 1?0?0?0
  10. RIFAMPICIN [Suspect]
     Active Substance: RIFAMPIN
     Dosage: 900 MILLIGRAM DAILY; 1?0?1?0
  11. APIXABAN [Interacting]
     Active Substance: APIXABAN
     Dosage: 10 MILLIGRAM DAILY; 1?0?1?0
  12. CANDESARTAN. [Concomitant]
     Active Substance: CANDESARTAN
     Dosage: .5 DOSAGE FORMS DAILY; 8 MG, 0.5?0?0?0

REACTIONS (8)
  - Labelled drug-drug interaction medication error [Unknown]
  - Dyspnoea [Unknown]
  - Anaemia [Unknown]
  - Product monitoring error [Unknown]
  - Tachycardia [Unknown]
  - Retching [Unknown]
  - Renal impairment [Unknown]
  - Breast discomfort [Unknown]
